FAERS Safety Report 8865292 (Version 1)
Quarter: 2012Q4

REPORT INFORMATION
  Report Type: 
  Country: US (occurrence: US)
  Receive Date: 20121024
  Receipt Date: 20121024
  Transmission Date: 20130627
  Serious: No
  Sender: FDA-Public Use
  Company Number: US-AMGEN-USASP2012002066

PATIENT
  Age: 62 Year
  Sex: Female
  Weight: 126.98 kg

DRUGS (1)
  1. ENBREL [Suspect]
     Indication: PSORIATIC ARTHROPATHY
     Dosage: 25 mg, 2 times/wk
     Route: 058

REACTIONS (2)
  - Groin pain [Unknown]
  - Arthralgia [Unknown]
